FAERS Safety Report 9129721 (Version 1)
Quarter: 2013Q1

REPORT INFORMATION
  Report Type: Spontaneous
  Country: US (occurrence: US)
  Receive Date: 20130125
  Receipt Date: 20130125
  Transmission Date: 20140127
  Serious: Yes (Other)
  Sender: FDA-Public Use
  Company Number: CHPA2013US001478

PATIENT
  Age: 72 Year
  Sex: 0

DRUGS (3)
  1. EXCEDRIN EXTRA STRENGTH [Suspect]
     Indication: FIBROMYALGIA
     Dosage: 1 CAPLET, 2 TO 3 TIMES PER DAY AS NEEDED
     Route: 048
  2. TYLENOL [Concomitant]
  3. DRUG THERAPY NOS [Concomitant]

REACTIONS (4)
  - Fibromyalgia [Not Recovered/Not Resolved]
  - Burning sensation [Not Recovered/Not Resolved]
  - Therapeutic response unexpected [Unknown]
  - Incorrect dose administered [Unknown]
